FAERS Safety Report 25564189 (Version 2)
Quarter: 2025Q3

REPORT INFORMATION
  Report Type: Spontaneous
  Country: US (occurrence: US)
  Receive Date: 20250716
  Receipt Date: 20250804
  Transmission Date: 20251020
  Serious: No
  Sender: Kenvue
  Company Number: US-KENVUE-20250611233

PATIENT
  Sex: Male
  Weight: 101 kg

DRUGS (31)
  1. TYLENOL [Suspect]
     Active Substance: ACETAMINOPHEN
     Indication: Headache
     Route: 065
     Dates: start: 2025
  2. TYVASO [Concomitant]
     Active Substance: TREPROSTINIL
     Indication: Pulmonary arterial hypertension
     Dosage: 18 MICROGRAM (3 BREATHS), FOUR TIME A DAY
     Dates: start: 20250224, end: 202503
  3. TYVASO [Concomitant]
     Active Substance: TREPROSTINIL
     Indication: Pulmonary hypertension
     Dosage: 24 MICROGRAM (4 BREATHS), FOUR TIME A DAY
     Dates: start: 202503, end: 2025
  4. TYVASO [Concomitant]
     Active Substance: TREPROSTINIL
     Indication: Interstitial lung disease
     Dosage: 30 MICROGRAM (5 BREATHS), FOUR TIME A DAY
     Dates: start: 2025, end: 2025
  5. TYVASO [Concomitant]
     Active Substance: TREPROSTINIL
     Indication: Hypoxia
     Dosage: 36 MICROGRAM (6 BREATHS), FOUR TIME A DAY
     Dates: start: 2025, end: 2025
  6. TYVASO [Concomitant]
     Active Substance: TREPROSTINIL
     Indication: Hypersensitivity pneumonitis
     Dosage: 18 ?G - 72 ?G (3-12 BREATHS), FOUR TIME A DAY
     Dates: start: 2025, end: 2025
  7. TYVASO [Concomitant]
     Active Substance: TREPROSTINIL
     Dosage: 42 MICROGRAM (7 BREATHS), FOUR TIME A DAY
     Dates: start: 2025, end: 2025
  8. TYVASO [Concomitant]
     Active Substance: TREPROSTINIL
     Dates: start: 2025, end: 2025
  9. TYVASO [Concomitant]
     Active Substance: TREPROSTINIL
     Dosage: 42 MICROGRAM (7 BREATHS), FOUR TIME A DAY
     Dates: start: 2025
  10. TYVASO [Concomitant]
     Active Substance: TREPROSTINIL
     Dates: start: 20250224
  11. TYVASO [Concomitant]
     Active Substance: TREPROSTINIL
     Dates: start: 20250303
  12. FUROSEMIDE [Concomitant]
     Active Substance: FUROSEMIDE
     Indication: Product used for unknown indication
     Route: 065
  13. AMLODIPINE BESYLATE [Concomitant]
     Active Substance: AMLODIPINE BESYLATE
     Indication: Product used for unknown indication
     Route: 065
  14. ROSUVASTATIN [Concomitant]
     Active Substance: ROSUVASTATIN
     Indication: Product used for unknown indication
     Route: 065
  15. ATENOLOL [Concomitant]
     Active Substance: ATENOLOL
     Indication: Product used for unknown indication
     Route: 065
  16. PROTONIX [Concomitant]
     Active Substance: PANTOPRAZOLE SODIUM
     Indication: Product used for unknown indication
     Route: 065
  17. VITAMIN D3 [Concomitant]
     Active Substance: CHOLECALCIFEROL
     Indication: Product used for unknown indication
     Route: 065
  18. LOSARTAN POTASSIUM [Concomitant]
     Active Substance: LOSARTAN POTASSIUM
     Indication: Blood pressure systolic increased
     Route: 065
     Dates: start: 2025
  19. ISOSORBIDE MONONITRATE [Concomitant]
     Active Substance: ISOSORBIDE MONONITRATE
     Indication: Product used for unknown indication
     Route: 065
  20. METAMUCIL [Concomitant]
     Active Substance: PLANTAGO SEED
     Indication: Product used for unknown indication
     Route: 065
  21. CELLCEPT [Concomitant]
     Active Substance: MYCOPHENOLATE MOFETIL
     Indication: Product used for unknown indication
     Route: 065
  22. PREDNISONE [Concomitant]
     Active Substance: PREDNISONE
     Indication: Product used for unknown indication
     Route: 065
  23. OXYGEN [Concomitant]
     Active Substance: OXYGEN
     Indication: Product used for unknown indication
     Route: 065
  24. COENZYME Q10 [Concomitant]
     Active Substance: DIETARY SUPPLEMENT\UBIDECARENONE
     Indication: Product used for unknown indication
     Route: 065
  25. ASPIRIN [Concomitant]
     Active Substance: ASPIRIN
     Indication: Product used for unknown indication
     Route: 065
  26. ACYCLOVIR [Concomitant]
     Active Substance: ACYCLOVIR
     Indication: Herpes zoster
     Route: 065
     Dates: start: 20250606, end: 202506
  27. CELECOXIB [Concomitant]
     Active Substance: CELECOXIB
     Indication: Product used for unknown indication
     Route: 065
  28. UNSPECIFIED INGREDIENT [Concomitant]
     Active Substance: UNSPECIFIED INGREDIENT
     Indication: Blood pressure measurement
     Route: 065
  29. DEVICE [Concomitant]
     Active Substance: DEVICE
     Indication: Product used for unknown indication
     Route: 065
  30. ACETAMINOPHEN [Concomitant]
     Active Substance: ACETAMINOPHEN
     Indication: Product used for unknown indication
     Route: 065
  31. DILTIAZEM [Concomitant]
     Active Substance: DILTIAZEM
     Indication: Product used for unknown indication
     Route: 065

REACTIONS (1)
  - Therapeutic product effect incomplete [Unknown]

NARRATIVE: CASE EVENT DATE: 20250101
